FAERS Safety Report 12637179 (Version 1)
Quarter: 2016Q3

REPORT INFORMATION
  Report Type: Spontaneous
  Country: US (occurrence: US)
  Receive Date: 20160809
  Receipt Date: 20160809
  Transmission Date: 20161109
  Serious: No
  Sender: FDA-Public Use
  Company Number: US-BEH-2015053815

PATIENT
  Sex: Female
  Weight: 63 kg

DRUGS (21)
  1. PENICILLIN V POTASSIUM. [Concomitant]
     Active Substance: PENICILLIN V POTASSIUM
  2. RELPAX [Concomitant]
     Active Substance: ELETRIPTAN HYDROBROMIDE
  3. ESTRADIOL. [Concomitant]
     Active Substance: ESTRADIOL
  4. FLUCONAZOLE. [Concomitant]
     Active Substance: FLUCONAZOLE
  5. OMEPRAZOLE. [Concomitant]
     Active Substance: OMEPRAZOLE
  6. ISOMETHEPTENE [Concomitant]
     Active Substance: ISOMETHEPTENE
  7. HEPARIN [Concomitant]
     Active Substance: HEPARIN SODIUM
  8. LMX [Concomitant]
     Active Substance: LIDOCAINE
  9. ACETAMINOPHEN. [Concomitant]
     Active Substance: ACETAMINOPHEN
  10. DIPHENHYDRAMINE. [Concomitant]
     Active Substance: DIPHENHYDRAMINE
  11. PRIVIGEN [Suspect]
     Active Substance: HUMAN IMMUNOGLOBULIN G
     Indication: IMMUNODEFICIENCY COMMON VARIABLE
     Route: 042
  12. FLONASE [Concomitant]
     Active Substance: FLUTICASONE PROPIONATE
  13. HYDROXYCHLOROQUINE [Concomitant]
     Active Substance: HYDROXYCHLOROQUINE
  14. CEFDINIR. [Concomitant]
     Active Substance: CEFDINIR
  15. PLAQUENIL [Concomitant]
     Active Substance: HYDROXYCHLOROQUINE SULFATE
  16. PRILOSEC [Concomitant]
     Active Substance: OMEPRAZOLE MAGNESIUM
  17. METAXALONE. [Concomitant]
     Active Substance: METAXALONE
  18. CATAFLAM [Concomitant]
     Active Substance: DICLOFENAC POTASSIUM
  19. SODIUM CHLORIDE. [Concomitant]
     Active Substance: SODIUM CHLORIDE
  20. EPIPEN [Concomitant]
     Active Substance: EPINEPHRINE
     Indication: ANAPHYLACTIC REACTION
  21. SYNTHROID [Concomitant]
     Active Substance: LEVOTHYROXINE SODIUM

REACTIONS (1)
  - Sinusitis [Not Recovered/Not Resolved]
